FAERS Safety Report 6958121-5 (Version None)
Quarter: 2010Q3

REPORT INFORMATION
  Report Type: 
  Country: None (occurrence: None)
  Receive Date: 20100831
  Receipt Date: 20100823
  Transmission Date: 20110219
  Serious: Yes (Life-Threatening, Hospitalization, Other)
  Sender: FDA-Public Use
  Company Number: AU-ELI_LILLY_AND_COMPANY-AU201008006305

PATIENT
  Sex: Male
  Weight: 85 kg

DRUGS (31)
  1. DROTRECOGIN ALFA (ACTIVATED) [Suspect]
     Indication: SEPTIC SHOCK
     Dosage: 24 D/F, EVERY HOUR
     Route: 042
     Dates: start: 20100820, end: 20100823
  2. HYDROCORTISONE [Concomitant]
     Indication: SEPSIS
     Dates: start: 20100819
  3. LINCOMYCIN [Concomitant]
     Indication: ABSCESS
     Dates: start: 20100819, end: 20100819
  4. TAZOCIN [Concomitant]
     Indication: ABSCESS
     Dates: start: 20100820
  5. CIPROFLOXACIN [Concomitant]
     Indication: ABSCESS
     Dates: start: 20100820
  6. MAGNESIUM SULPHATE                 /00167401/ [Concomitant]
     Indication: BLOOD MAGNESIUM DECREASED
     Dates: start: 20100820, end: 20100820
  7. NORADRENALINE [Concomitant]
     Indication: SEPTIC SHOCK
     Dosage: 45 UG, OTHER
     Dates: start: 20100819
  8. MIDAZOLAM HCL [Concomitant]
     Indication: MECHANICAL VENTILATION
     Dates: start: 20100820
  9. PROPOFOL [Concomitant]
     Indication: MECHANICAL VENTILATION
     Dates: start: 20100820, end: 20100820
  10. FENTANYL CITRATE [Concomitant]
     Indication: MECHANICAL VENTILATION
     Dates: start: 20100820
  11. MORPHINE [Concomitant]
     Indication: MECHANICAL VENTILATION
     Dates: start: 20100820, end: 20100820
  12. VANCOMYCIN [Concomitant]
     Indication: SEPSIS
     Dates: start: 20100821
  13. ALBUTEROL SULFATE AUTOHALER [Concomitant]
     Indication: CHRONIC OBSTRUCTIVE PULMONARY DISEASE
     Dates: start: 20100821
  14. VASOPRESSIN [Concomitant]
     Indication: SEPTIC SHOCK
     Dates: start: 20100821
  15. HEPARIN [Concomitant]
     Indication: PROPHYLAXIS
     Dosage: 500 IU, EVERY HOUR
     Dates: start: 20100820, end: 20100823
  16. VECURONIUM BROMIDE [Concomitant]
     Indication: THERAPEUTIC PROCEDURE
     Dates: start: 20100819, end: 20100819
  17. DEXTROSE [Concomitant]
     Indication: HYPERKALAEMIA
     Dates: start: 20100819, end: 20100819
  18. ADRENALINE [Concomitant]
     Indication: SEPTIC SHOCK
     Dosage: 20 UG, OTHER
     Dates: start: 20100819, end: 20100819
  19. ACTRAPID /00030501/ [Concomitant]
     Indication: HYPERKALAEMIA
     Dates: start: 20100819, end: 20100819
  20. METFORMIN HCL [Concomitant]
     Indication: TYPE 2 DIABETES MELLITUS
     Dosage: UNK, UNK
     Dates: end: 20100819
  21. ASPIRIN [Concomitant]
     Indication: PROPHYLAXIS
     Dosage: 100 MG, DAILY (1/D)
     Dates: end: 20100819
  22. COVERSYL PLUS [Concomitant]
     Indication: HYPERTENSION
     Dosage: UNK, UNK
     Dates: end: 20100819
  23. ALBUTEROL SULFATE AUTOHALER [Concomitant]
     Dates: end: 20100819
  24. SPIRIVA [Concomitant]
     Indication: CHRONIC OBSTRUCTIVE PULMONARY DISEASE
     Dosage: UNK, UNK
     Dates: end: 20100819
  25. LIPIDIL [Concomitant]
     Indication: HYPERCHOLESTEROLAEMIA
     Dosage: UNK, UNK
     Dates: end: 20100819
  26. ATACAND [Concomitant]
     Indication: HYPERTENSION
     Dosage: UNK, UNK
     Dates: end: 20100819
  27. ERYTHROMYCIN [Concomitant]
     Indication: IMPAIRED GASTRIC EMPTYING
     Dates: start: 20100821, end: 20100823
  28. METOCLOPRAMIDE [Concomitant]
     Indication: IMPAIRED GASTRIC EMPTYING
     Dates: start: 20100821, end: 20100823
  29. VITAMIN K TAB [Concomitant]
     Indication: COAGULOPATHY
     Dates: start: 20100823
  30. PHOSPHATE [Concomitant]
     Indication: HYPOPHOSPHATAEMIA
     Dates: start: 20100823, end: 20100823
  31. MAGNESIUM SULFATE [Concomitant]
     Indication: HYPOMAGNESAEMIA
     Dates: start: 20100823, end: 20100823

REACTIONS (3)
  - CEREBRAL HAEMORRHAGE [None]
  - LOCAL SWELLING [None]
  - PNEUMOTHORAX [None]
